FAERS Safety Report 8266544-X (Version None)
Quarter: 2012Q2

REPORT INFORMATION
  Report Type: 
  Country: None (occurrence: None)
  Receive Date: 20120406
  Receipt Date: 20120328
  Transmission Date: 20120825
  Serious: Yes (Hospitalization)
  Sender: FDA-Public Use
  Company Number: US-BAXTER-2012BAX001199

PATIENT
  Sex: Male

DRUGS (3)
  1. DIANEAL [Suspect]
     Route: 033
     Dates: start: 20101108
  2. DIANEAL [Suspect]
     Indication: PERITONEAL DIALYSIS
     Route: 033
     Dates: start: 20101108
  3. DIANEAL [Suspect]
     Route: 033
     Dates: start: 20101108

REACTIONS (3)
  - ROAD TRAFFIC ACCIDENT [None]
  - STERNAL FRACTURE [None]
  - RIB FRACTURE [None]
